FAERS Safety Report 8261923-9 (Version None)
Quarter: 2012Q2

REPORT INFORMATION
  Report Type: 
  Country: None (occurrence: None)
  Receive Date: 20120405
  Receipt Date: 20120402
  Transmission Date: 20120825
  Serious: Yes (Other)
  Sender: FDA-Public Use
  Company Number: US-PFIZER INC-2012074881

PATIENT
  Sex: Female

DRUGS (3)
  1. ATENOLOL [Suspect]
     Dosage: 12.5 MG, UNK
  2. NORVASC [Suspect]
     Dosage: UNK
  3. ATENOLOL [Suspect]
     Dosage: 50 MG, UNK

REACTIONS (2)
  - CARDIAC FIBRILLATION [None]
  - HEART RATE DECREASED [None]
